FAERS Safety Report 5410263-1 (Version None)
Quarter: 2007Q3

REPORT INFORMATION
  Report Type: 
  Country: None (occurrence: None)
  Receive Date: 20070808
  Receipt Date: 20070726
  Transmission Date: 20080115
  Serious: Yes (Hospitalization)
  Sender: FDA-Public Use
  Company Number: 236240K07USA

PATIENT
  Age: 56 Year
  Sex: Female
  Weight: 127.0072 kg

DRUGS (2)
  1. REBIF [Suspect]
     Indication: MULTIPLE SCLEROSIS
     Dosage: 44 MCG, 3 IN 1 WEEKS, SUBCUTANEOUS
     Route: 058
     Dates: start: 20040109
  2. PAXIL [Concomitant]

REACTIONS (4)
  - CHILLS [None]
  - CORONARY ARTERY OCCLUSION [None]
  - HOT FLUSH [None]
  - MYOCARDIAL INFARCTION [None]
